FAERS Safety Report 16216473 (Version 1)
Quarter: 2019Q2

REPORT INFORMATION
  Report Type: Spontaneous
  Country: JP (occurrence: JP)
  Receive Date: 20190419
  Receipt Date: 20190419
  Transmission Date: 20190711
  Serious: Yes (Hospitalization, Other)
  Sender: FDA-Public Use
  Company Number: JP-PFIZER INC-2018526860

PATIENT
  Age: 36 Year
  Sex: Female

DRUGS (6)
  1. NEVANAC [Concomitant]
     Active Substance: NEPAFENAC
     Indication: SCLERITIS
     Dosage: UNK UNK, 2X/DAY
     Route: 047
     Dates: start: 20181211
  2. RINDERON [BETAMETHASONE SODIUM PHOSPHATE] [Concomitant]
     Indication: SCLERITIS
     Dosage: UNK, 6X/DAY
     Route: 047
     Dates: start: 20181127, end: 20181204
  3. LOXONIN-60 [Concomitant]
     Indication: EYE PAIN
     Dosage: UNK UNK, AS NEEDED
     Route: 048
     Dates: start: 20181127, end: 20181213
  4. LEVOFLOXACIN 1.5% PFIZER [Suspect]
     Active Substance: LEVOFLOXACIN
     Indication: SCLERITIS
     Dosage: 1 GTT, 6X/DAY
     Route: 047
     Dates: start: 20181204, end: 20181218
  5. BESTRON [Concomitant]
     Active Substance: CEFMENOXIME HYDROCHLORIDE
     Indication: INFECTION
     Dosage: UNK UNK, 4X/DAY
     Route: 047
     Dates: start: 20181129, end: 20181213
  6. RINDERON [BETAMETHASONE SODIUM PHOSPHATE] [Concomitant]
     Dosage: UNK, EVERY 1 HR.
     Route: 047
     Dates: start: 20181213

REACTIONS (6)
  - Liquid product physical issue [Recovered/Resolved]
  - Conjunctival disorder [Unknown]
  - Visual acuity reduced [Recovered/Resolved]
  - Eye pain [Recovered/Resolved]
  - Corneal erosion [Recovered/Resolved]
  - Condition aggravated [Unknown]

NARRATIVE: CASE EVENT DATE: 20181206
